FAERS Safety Report 6154544-5 (Version None)
Quarter: 2009Q2

REPORT INFORMATION
  Report Type: 
  Country: None (occurrence: None)
  Receive Date: 20090410
  Receipt Date: 20090410
  Transmission Date: 20091009
  Serious: Yes (Other)
  Sender: FDA-Public Use
  Company Number: None

PATIENT
  Age: 38 Year
  Sex: Female
  Weight: 63.9572 kg

DRUGS (4)
  1. SPECTOCEF 400 BID  X 10 [Suspect]
     Indication: BRONCHITIS
  2. SPECTOCEF 400 BID  X 10 [Suspect]
     Indication: SINUSITIS
  3. OMNI-TUSS [Concomitant]
  4. TUSSIONEX [Concomitant]

REACTIONS (3)
  - ABDOMINAL PAIN [None]
  - CLOSTRIDIUM DIFFICILE TOXIN TEST POSITIVE [None]
  - VOMITING [None]
